FAERS Safety Report 5162110-3 (Version None)
Quarter: 2006Q4

REPORT INFORMATION
  Report Type: 
  Country: None (occurrence: None)
  Receive Date: 20061121
  Receipt Date: 20061102
  Transmission Date: 20070319
  Serious: Yes (Hospitalization)
  Sender: FDA-Public Use
  Company Number: 231885

PATIENT
  Age: 67 Year
  Sex: Male
  Weight: 62 kg

DRUGS (11)
  1. AVASTIN [Suspect]
     Indication: COLORECTAL CANCER METASTATIC
     Dosage: 450 MG, Q3W, INTRAVENOUS
     Route: 042
     Dates: start: 20061005, end: 20061005
  2. CAPECITABINE                  (CAPECITABINE) [Suspect]
     Indication: COLORECTAL CANCER METASTATIC
     Dosage: 1800 MG, BID, ORAL
     Route: 048
     Dates: start: 20061005, end: 20061012
  3. OXALIPLATIN [Suspect]
     Indication: COLORECTAL CANCER METASTATIC
     Dosage: 217 MG, Q3W, INTRAVENOUS
     Route: 042
     Dates: start: 20061005, end: 20061005
  4. KYTRIL [Concomitant]
  5. LOXONIN         (LOXOPROFEN SODIUM) [Concomitant]
  6. DECADRON [Concomitant]
  7. MAGNESIUM OXIDE            (MAGNESIUM OXIDE) [Concomitant]
  8. BIO-THREE                       (CLOSTRIDIUM BUTYRICUM) [Concomitant]
  9. ZOFRAN [Concomitant]
  10. SELBEX       (TEPRENONE) [Concomitant]
  11. LENDORM [Concomitant]

REACTIONS (11)
  - EPIDIDYMITIS [None]
  - FATIGUE [None]
  - HAEMOGLOBIN DECREASED [None]
  - LOCALISED OEDEMA [None]
  - MELAENA [None]
  - NECROTISING FASCIITIS [None]
  - ORCHITIS [None]
  - POST PROCEDURAL HAEMORRHAGE [None]
  - RECTAL HAEMORRHAGE [None]
  - WOUND COMPLICATION [None]
  - WOUND DEHISCENCE [None]
